FAERS Safety Report 21770942 (Version 59)
Quarter: 2025Q2

REPORT INFORMATION
  Report Type: Report from Study
  Country: CA (occurrence: CA)
  Receive Date: 20221223
  Receipt Date: 20250609
  Transmission Date: 20250717
  Serious: Yes (Hospitalization, Disabling, Other)
  Sender: TAKEDA
  Company Number: CA-TAKEDA-2022TUS054482

PATIENT
  Sex: Male
  Weight: 27 kg

DRUGS (37)
  1. IDURSULFASE [Suspect]
     Active Substance: IDURSULFASE
     Indication: Mucopolysaccharidosis II
     Dosage: 12 MILLIGRAM, 1/WEEK
     Dates: start: 20210618
  2. IDURSULFASE [Suspect]
     Active Substance: IDURSULFASE
     Dosage: 12 MILLIGRAM, 1/WEEK
  3. IDURSULFASE [Suspect]
     Active Substance: IDURSULFASE
     Dosage: 12 MILLIGRAM, 1/WEEK
  4. IDURSULFASE [Suspect]
     Active Substance: IDURSULFASE
     Dosage: 12 MILLIGRAM, 1/WEEK
  5. IDURSULFASE [Suspect]
     Active Substance: IDURSULFASE
     Dosage: 12 GRAM, 1/WEEK
  6. IDURSULFASE [Suspect]
     Active Substance: IDURSULFASE
     Dosage: UNK UNK, MONTHLY
  7. IDURSULFASE [Suspect]
     Active Substance: IDURSULFASE
     Dosage: 12 MILLIGRAM, 1/WEEK
  8. IDURSULFASE [Suspect]
     Active Substance: IDURSULFASE
     Dosage: 21 MILLIGRAM, 1/WEEK
  9. IDURSULFASE [Suspect]
     Active Substance: IDURSULFASE
     Dosage: 12 MILLIGRAM, 1/WEEK
  10. IDURSULFASE [Suspect]
     Active Substance: IDURSULFASE
     Dosage: 12 MILLIGRAM, 1/WEEK
  11. IDURSULFASE [Suspect]
     Active Substance: IDURSULFASE
     Dosage: UNK UNK, 1/WEEK
  12. IDURSULFASE [Suspect]
     Active Substance: IDURSULFASE
     Dosage: 12 MILLIGRAM, 1/WEEK
  13. IDURSULFASE [Suspect]
     Active Substance: IDURSULFASE
     Dosage: 2 MILLIGRAM, 1/WEEK
  14. IDURSULFASE [Suspect]
     Active Substance: IDURSULFASE
     Dosage: 6 MILLIGRAM, 1/WEEK
  15. IDURSULFASE [Suspect]
     Active Substance: IDURSULFASE
     Dosage: 12 MILLIGRAM, 1/WEEK
  16. IDURSULFASE [Suspect]
     Active Substance: IDURSULFASE
     Dosage: 14 MILLIGRAM, 1/WEEK
  17. IDURSULFASE [Suspect]
     Active Substance: IDURSULFASE
     Dosage: 14 MILLIGRAM, 1/WEEK
  18. IDURSULFASE [Suspect]
     Active Substance: IDURSULFASE
     Dosage: 0.5 MILLIGRAM/KILOGRAM, 1/WEEK
  19. IDURSULFASE [Suspect]
     Active Substance: IDURSULFASE
     Dosage: 0.5 MILLIGRAM/KILOGRAM, 1/WEEK
  20. IDURSULFASE [Suspect]
     Active Substance: IDURSULFASE
     Dosage: 15.75 MILLIGRAM, 1/WEEK
  21. IDURSULFASE [Suspect]
     Active Substance: IDURSULFASE
     Dosage: 15.75 MILLIGRAM, 1/WEEK
  22. IDURSULFASE [Suspect]
     Active Substance: IDURSULFASE
     Dosage: UNK UNK, 1/WEEK
  23. IDURSULFASE [Suspect]
     Active Substance: IDURSULFASE
     Dosage: UNK UNK, 1/WEEK
  24. IDURSULFASE [Suspect]
     Active Substance: IDURSULFASE
     Dosage: 15.75 MILLIGRAM, 1/WEEK
  25. IDURSULFASE [Suspect]
     Active Substance: IDURSULFASE
     Dosage: 15.75 MILLIGRAM, 1/WEEK
  26. IDURSULFASE [Suspect]
     Active Substance: IDURSULFASE
     Dosage: UNK UNK, 1/WEEK
  27. IDURSULFASE [Suspect]
     Active Substance: IDURSULFASE
     Dosage: 19.5 MILLIGRAM, 1/WEEK
  28. ACETAMINOPHEN [Concomitant]
     Active Substance: ACETAMINOPHEN
  29. ACETAMINOPHEN [Concomitant]
     Active Substance: ACETAMINOPHEN
     Dosage: 30 MILLILITER, BID
     Dates: start: 20250205, end: 20250212
  30. OMEGA 3 [Concomitant]
     Active Substance: CAPSAICIN
  31. VITAMIN D [Concomitant]
     Active Substance: VITAMIN D NOS
  32. PHENOLPHTHALEIN [Concomitant]
     Active Substance: PHENOLPHTHALEIN
  33. FAMOTIDINE [Concomitant]
     Active Substance: FAMOTIDINE
     Dosage: 10 MILLIGRAM, BID
  34. AMOXICILLIN\CLAVULANATE POTASSIUM [Concomitant]
     Active Substance: AMOXICILLIN\CLAVULANATE POTASSIUM
     Dosage: UNK UNK, BID
     Dates: start: 20231121
  35. POLYETHYLENE GLYCOL 3350 [Concomitant]
     Active Substance: POLYETHYLENE GLYCOL 3350
  36. Omega [Concomitant]
  37. AZITHROMYCIN [Concomitant]
     Active Substance: AZITHROMYCIN
     Dates: start: 20230726, end: 20230810

REACTIONS (61)
  - Dyspnoea [Not Recovered/Not Resolved]
  - Aspiration [Unknown]
  - Cough [Recovering/Resolving]
  - Rhinorrhoea [Not Recovered/Not Resolved]
  - Pneumonia bacterial [Recovering/Resolving]
  - Peritonsillar abscess [Recovering/Resolving]
  - Haemorrhagic stroke [Recovering/Resolving]
  - Aneurysm ruptured [Recovering/Resolving]
  - Adenovirus infection [Recovering/Resolving]
  - Gait inability [Recovering/Resolving]
  - Ischaemic stroke [Recovering/Resolving]
  - Vocal cord disorder [Recovering/Resolving]
  - Constipation [Recovering/Resolving]
  - Rales [Recovering/Resolving]
  - Nasopharyngitis [Recovered/Resolved]
  - Blindness unilateral [Not Recovered/Not Resolved]
  - Insomnia [Recovering/Resolving]
  - Nasal congestion [Recovered/Resolved]
  - Autism spectrum disorder [Not Recovered/Not Resolved]
  - Nasal discharge discolouration [Not Recovered/Not Resolved]
  - Pneumonia [Recovering/Resolving]
  - Pyrexia [Recovered/Resolved]
  - Snoring [Not Recovered/Not Resolved]
  - COVID-19 [Not Recovered/Not Resolved]
  - Respiratory tract congestion [Unknown]
  - Ear congestion [Not Recovered/Not Resolved]
  - Influenza like illness [Recovering/Resolving]
  - Respiratory rate decreased [Unknown]
  - Weight increased [Unknown]
  - Viral infection [Recovered/Resolved]
  - Device connection issue [Recovered/Resolved]
  - Device breakage [Unknown]
  - Overweight [Unknown]
  - Erythema [Not Recovered/Not Resolved]
  - Heart rate abnormal [Not Recovered/Not Resolved]
  - Blood pressure increased [Recovered/Resolved]
  - Body temperature abnormal [Recovering/Resolving]
  - Faeces soft [Recovered/Resolved]
  - Poor venous access [Recovering/Resolving]
  - Breath sounds abnormal [Recovering/Resolving]
  - Malaise [Recovered/Resolved]
  - Sinusitis [Recovering/Resolving]
  - Decreased appetite [Recovered/Resolved]
  - Heart rate increased [Recovered/Resolved]
  - Wrong technique in product usage process [Unknown]
  - Inappropriate schedule of product administration [Unknown]
  - Food intolerance [Not Recovered/Not Resolved]
  - Food poisoning [Not Recovered/Not Resolved]
  - Gastrointestinal viral infection [Recovered/Resolved]
  - Gastrointestinal bacterial infection [Recovering/Resolving]
  - Lip discolouration [Recovered/Resolved]
  - Blood pressure abnormal [Not Recovered/Not Resolved]
  - Productive cough [Not Recovered/Not Resolved]
  - Irritability [Recovering/Resolving]
  - Crying [Recovering/Resolving]
  - Incorrect dose administered [Unknown]
  - Hypersomnia [Recovering/Resolving]
  - Fatigue [Recovered/Resolved]
  - Ear infection [Recovering/Resolving]
  - Diarrhoea [Recovering/Resolving]
  - Vomiting [Recovered/Resolved]

NARRATIVE: CASE EVENT DATE: 20220101
